FAERS Safety Report 15332574 (Version 6)
Quarter: 2021Q1

REPORT INFORMATION
  Report Type: Other
  Country: CA (occurrence: CA)
  Receive Date: 20180830
  Receipt Date: 20210331
  Transmission Date: 20210419
  Serious: Yes (Hospitalization, Other)
  Sender: FDA-Public Use
  Company Number: CA-ROCHE-2123931

PATIENT
  Age: 74 Year
  Sex: Male
  Weight: 110 kg

DRUGS (19)
  1. INSULIN [Concomitant]
     Active Substance: INSULIN NOS
  2. RAMIPRIL. [Concomitant]
     Active Substance: RAMIPRIL
  3. ACTEMRA [Suspect]
     Active Substance: TOCILIZUMAB
     Route: 042
     Dates: start: 20180517
  4. PREDNISONE. [Concomitant]
     Active Substance: PREDNISONE
  5. RISEDRONATE [Concomitant]
     Active Substance: RISEDRONATE SODIUM
  6. EZETIMIBE. [Concomitant]
     Active Substance: EZETIMIBE
  7. ATACAND [Concomitant]
     Active Substance: CANDESARTAN CILEXETIL
  8. ZOPLICONE [Concomitant]
     Active Substance: ZOPICLONE
  9. ACTEMRA [Suspect]
     Active Substance: TOCILIZUMAB
     Route: 042
     Dates: start: 20160922
  10. METHOTREXATE. [Concomitant]
     Active Substance: METHOTREXATE
  11. PANTOPRAZOLE [Concomitant]
     Active Substance: PANTOPRAZOLE
  12. ENOXAPARIN [Concomitant]
     Active Substance: ENOXAPARIN
     Indication: ANTICOAGULANT THERAPY
  13. TAMULOSIN [Concomitant]
     Active Substance: TAMSULOSIN
  14. ACTEMRA [Suspect]
     Active Substance: TOCILIZUMAB
     Indication: JUVENILE IDIOPATHIC ARTHRITIS
     Route: 058
     Dates: start: 20190127
  15. FOLIC ACID. [Concomitant]
     Active Substance: FOLIC ACID
  16. PLAQUENIL [Concomitant]
     Active Substance: HYDROXYCHLOROQUINE SULFATE
  17. ACTEMRA [Suspect]
     Active Substance: TOCILIZUMAB
     Indication: STILL^S DISEASE
     Route: 042
     Dates: start: 20160623, end: 20181129
  18. ACTEMRA [Suspect]
     Active Substance: TOCILIZUMAB
     Route: 042
     Dates: start: 20161020
  19. NPH INSULIN [Concomitant]
     Active Substance: INSULIN BEEF

REACTIONS (18)
  - White blood cell count increased [Not Recovered/Not Resolved]
  - Oropharyngeal pain [Not Recovered/Not Resolved]
  - Abdominal pain [Unknown]
  - Blood urine present [Unknown]
  - Eye pain [Unknown]
  - Lethargy [Not Recovered/Not Resolved]
  - Sepsis [Unknown]
  - Thrombosis [Unknown]
  - Cholelithiasis [Unknown]
  - Pain [Unknown]
  - Pneumonia [Unknown]
  - Neck pain [Not Recovered/Not Resolved]
  - Asthenia [Not Recovered/Not Resolved]
  - Cholecystitis infective [Unknown]
  - Pain in jaw [Not Recovered/Not Resolved]
  - Intestinal ischaemia [Unknown]
  - Peripheral swelling [Recovering/Resolving]
  - Swelling [Unknown]

NARRATIVE: CASE EVENT DATE: 2018
